FAERS Safety Report 21145754 (Version 4)
Quarter: 2022Q3

REPORT INFORMATION
  Report Type: Spontaneous
  Country: JP (occurrence: JP)
  Receive Date: 20220729
  Receipt Date: 20220926
  Transmission Date: 20221026
  Serious: Yes (Other)
  Sender: FDA-Public Use
  Company Number: JP-KYOWAKIRIN-2022AKK011196

PATIENT
  Age: 71 Year
  Sex: Female

DRUGS (26)
  1. DARBEPOETIN ALFA [Suspect]
     Active Substance: DARBEPOETIN ALFA
     Indication: Nephrogenic anaemia
     Dosage: 60 MICROGRAM, QWK
     Route: 065
     Dates: start: 20220607, end: 20220618
  2. DARBEPOETIN ALFA [Suspect]
     Active Substance: DARBEPOETIN ALFA
     Dosage: 60 MICROGRAM
     Route: 065
     Dates: start: 20220621, end: 20220621
  3. DARBEPOETIN ALFA [Suspect]
     Active Substance: DARBEPOETIN ALFA
     Dosage: 120 MICROGRAM
     Route: 065
     Dates: start: 20220702, end: 20220702
  4. DARBEPOETIN ALFA [Suspect]
     Active Substance: DARBEPOETIN ALFA
     Dosage: 60 MICROGRAM, QWK
     Route: 065
     Dates: start: 20220709, end: 20220716
  5. EPOETIN ALFA [Suspect]
     Active Substance: ERYTHROPOIETIN
     Indication: Nephrogenic anaemia
     Dosage: 1500 MICROGRAM, Q3WK,(TUES THUR SAT)
     Route: 065
     Dates: start: 20220120, end: 20220209
  6. EPOETIN ALFA [Suspect]
     Active Substance: ERYTHROPOIETIN
     Dosage: 1500 MICROGRAM, QWK (SAT)
     Route: 065
     Dates: start: 20220210, end: 20220516
  7. EPOETIN ALFA [Suspect]
     Active Substance: ERYTHROPOIETIN
     Dosage: 1500 MICROGRAM, 3 TIMES/WK, (TUES THUR SAT)
     Route: 065
     Dates: start: 20220517, end: 20220528
  8. EPOETIN ALFA [Suspect]
     Active Substance: ERYTHROPOIETIN
     Dosage: 3000 UNK, 3 TIMES/WK(TUES THUR SAT)
     Route: 065
     Dates: start: 20220528, end: 20220606
  9. EPOETIN ALFA [Suspect]
     Active Substance: ERYTHROPOIETIN
     Dosage: 3000 MICROGRAM
     Route: 065
     Dates: start: 20220607, end: 20220607
  10. EPOETIN ALFA [Suspect]
     Active Substance: ERYTHROPOIETIN
     Dosage: 3000 MICROGRAM
     Route: 065
     Dates: start: 20220609, end: 20220609
  11. PARSABIV [Concomitant]
     Active Substance: ETELCALCETIDE HYDROCHLORIDE
     Indication: Hyperparathyroidism secondary
     Dosage: 7.5 MILLIGRAM
     Route: 010
  12. ROXADUSTAT [Concomitant]
     Active Substance: ROXADUSTAT
     Indication: Nephrogenic anaemia
     Dosage: 100 MILLIGRAM, 3 TIMES/WK DURING DIALYSIS
     Route: 065
     Dates: start: 20220628, end: 20220705
  13. TRIAZOLAM [Concomitant]
     Active Substance: TRIAZOLAM
     Indication: Insomnia
     Dosage: 0.125 MILLIGRAM,  BEFORE BEDTIME QD
     Route: 048
  14. ASPIRIN [Concomitant]
     Active Substance: ASPIRIN
     Indication: Thrombosis prophylaxis
     Route: 048
  15. RABEPRAZOLE SODIUM [Concomitant]
     Active Substance: RABEPRAZOLE SODIUM
     Indication: Gastrooesophageal reflux disease
     Dosage: 10 MILLIGRAM, QD, AFTER BREAKFAST
     Route: 048
     Dates: start: 20220712
  16. NITROFURANTOIN [Concomitant]
     Active Substance: NITROFURANTOIN
     Indication: Zinc deficiency
     Dosage: 75 MILLIGRAM, BID, AFTER BREAKFAST AND AFTER DINNER
     Route: 048
  17. FOSRENOL [Concomitant]
     Active Substance: LANTHANUM CARBONATE
     Indication: Hyperphosphataemia
     Dosage: 250 MILLIGRAM, TID, AFTER EACH MEAL
     Route: 048
     Dates: start: 20220413
  18. LICORICE ROOT EXTRACT\RHUBARB [Concomitant]
     Active Substance: LICORICE ROOT EXTRACT\RHUBARB
     Indication: Constipation
     Dosage: 2 DOSAGE FORM, TID, AFTER EACH MEAL
     Route: 048
  19. BISOPROLOL FUMARATE [Concomitant]
     Active Substance: BISOPROLOL FUMARATE
     Indication: Tachyarrhythmia
     Dosage: 5 MILLIGRAM, QD, AFTER DINNER
     Route: 048
  20. AMEZINIUM METILSULFATE [Concomitant]
     Active Substance: AMEZINIUM METILSULFATE
     Indication: Prophylaxis
     Dosage: 10 MILLIGRAM, TAKE DURING DIALYSIS
     Route: 048
  21. ROSUVASTATIN [Concomitant]
     Active Substance: ROSUVASTATIN
     Indication: Hyperlipidaemia
     Dosage: 5 MILLIGRAM, AFTER DISCONTINUATION, SWITCHED TO ATORVASTATIN
     Route: 048
     Dates: end: 20220722
  22. LANSOPRAZOLE [Concomitant]
     Active Substance: LANSOPRAZOLE
     Indication: Gastrooesophageal reflux disease
     Dosage: 15 MILLIGRAM
     Route: 048
     Dates: end: 20220711
  23. OXAROL [Concomitant]
     Active Substance: MAXACALCITOL
     Indication: Hyperparathyroidism secondary
     Dosage: 5 MICROGRAM, QWK
     Route: 010
  24. OXAROL [Concomitant]
     Active Substance: MAXACALCITOL
     Dosage: 2.5 MICROGRAM, Q3WK
     Route: 010
     Dates: start: 20220514, end: 20220709
  25. OXAROL [Concomitant]
     Active Substance: MAXACALCITOL
     Dosage: 2.5 MICROGRAM, Q2WK
     Route: 010
     Dates: start: 20220806
  26. LEVOCARNITINE [Concomitant]
     Active Substance: LEVOCARNITINE
     Indication: Carnitine deficiency
     Dosage: 1000 MILLIGRAM, 3 TIMES A DAY (3 TIMES A WEEK ON TUESDAYS, THURSDAYS, AND SATURDAYS)
     Route: 048

REACTIONS (1)
  - Aplasia pure red cell [Unknown]

NARRATIVE: CASE EVENT DATE: 20220607
